FAERS Safety Report 17223946 (Version 1)
Quarter: 2019Q4

REPORT INFORMATION
  Report Type: Spontaneous
  Country: US (occurrence: US)
  Receive Date: 20191209
  Receipt Date: 20191209
  Transmission Date: 20200122
  Serious: No
  Sender: FDA-Public Use
  Company Number: None

PATIENT
  Age: 39 Year
  Sex: Female

DRUGS (1)
  1. TALTZ [Suspect]
     Active Substance: IXEKIZUMAB
     Indication: PSORIASIS
     Dosage: 0THER
     Route: 058
     Dates: start: 201908

REACTIONS (3)
  - Psoriasis [None]
  - Device malfunction [None]
  - Wrong technique in device usage process [None]

NARRATIVE: CASE EVENT DATE: 20191209
